FAERS Safety Report 5981574-6 (Version None)
Quarter: 2008Q4

REPORT INFORMATION
  Report Type: 
  Country: None (occurrence: None)
  Receive Date: 20081205
  Receipt Date: 20081124
  Transmission Date: 20090506
  Serious: Yes (Other)
  Sender: FDA-Public Use
  Company Number: GB-WYE-G02635508

PATIENT
  Sex: Female

DRUGS (1)
  1. VENLAFAXINE HYDROCHLORIDE [Suspect]
     Dosage: 225MG, FREQUENCY UNSPECIFIED
     Route: 048
     Dates: start: 20070501

REACTIONS (2)
  - CEREBRAL INFARCTION [None]
  - MEMORY IMPAIRMENT [None]
